FAERS Safety Report 8789460 (Version 1)
Quarter: 2012Q4

REPORT INFORMATION
  Report Type: Spontaneous
  Country: US (occurrence: None)
  Receive Date: 20120910
  Receipt Date: 20120910
  Transmission Date: 20130627
  Serious: Yes (Hospitalization)
  Sender: FDA-Public Use
  Company Number: None

PATIENT
  Sex: Male
  Weight: 82.9 kg

DRUGS (1)
  1. CEPHALEXIN [Suspect]
     Route: 048

REACTIONS (2)
  - Cholestasis [None]
  - Drug-induced liver injury [None]
